FAERS Safety Report 8663688 (Version 2)
Quarter: 2012Q4

REPORT INFORMATION
  Report Type: 
  Country: FR (occurrence: FR)
  Receive Date: 20120713
  Receipt Date: 20120928
  Transmission Date: 20130627
  Serious: Yes (Other)
  Sender: FDA-Public Use
  Company Number: FR-BAYER-2012-068889

PATIENT
  Age: 46 Year
  Sex: Female
  Weight: 45 kg

DRUGS (2)
  1. MIRENA [Suspect]
     Indication: CONTRACEPTION
     Dosage: 20 ?g, CONT
     Route: 015
     Dates: start: 200809, end: 20120710
  2. INNOHEP [Concomitant]
     Route: 058

REACTIONS (1)
  - Pelvic venous thrombosis [Not Recovered/Not Resolved]
